FAERS Safety Report 4430728-9 (Version None)
Quarter: 2004Q3

REPORT INFORMATION
  Report Type: 
  Country: None (occurrence: None)
  Receive Date: 20040818
  Receipt Date: 20040616
  Transmission Date: 20050211
  Serious: Yes (Hospitalization)
  Sender: FDA-Public Use
  Company Number: 2004AP02308

PATIENT
  Age: 54 Year
  Sex: Male

DRUGS (9)
  1. IRESSA [Suspect]
     Indication: LUNG SQUAMOUS CELL CARCINOMA STAGE UNSPECIFIED
     Dosage: 250 MG DAILY PO
     Route: 048
     Dates: start: 20040305, end: 20040412
  2. IRESSA [Suspect]
     Indication: NON-SMALL CELL LUNG CANCER
     Dosage: 250 MG DAILY PO
     Route: 048
     Dates: start: 20040305, end: 20040412
  3. IRESSA [Suspect]
     Indication: LUNG SQUAMOUS CELL CARCINOMA STAGE UNSPECIFIED
     Dosage: 250 MG DAILY PO
     Route: 048
     Dates: start: 20040426, end: 20040606
  4. IRESSA [Suspect]
     Indication: NON-SMALL CELL LUNG CANCER
     Dosage: 250 MG DAILY PO
     Route: 048
     Dates: start: 20040426, end: 20040606
  5. CISPLATIN [Concomitant]
  6. GEMCITABINE [Concomitant]
  7. VINORELBINE TARTRATE [Concomitant]
  8. RADIOTHERAPY [Concomitant]
  9. LOXONIN [Concomitant]

REACTIONS (12)
  - ALOPECIA [None]
  - BRONCHITIS [None]
  - CONSTIPATION [None]
  - COUGH [None]
  - DISEASE PROGRESSION [None]
  - ERYTHEMA [None]
  - HAEMORRHAGE [None]
  - HICCUPS [None]
  - INFECTED EPIDERMAL CYST [None]
  - INSOMNIA [None]
  - PHARYNX DISCOMFORT [None]
  - RASH [None]
